FAERS Safety Report 14977094 (Version 1)
Quarter: 2018Q2

REPORT INFORMATION
  Report Type: Spontaneous
  Country: US (occurrence: US)
  Receive Date: 20180606
  Receipt Date: 20180606
  Transmission Date: 20180711
  Serious: Yes (Other)
  Sender: FDA-Public Use
  Company Number: US-AMGEN-USASP2018073335

PATIENT
  Age: 15 Year
  Sex: Male

DRUGS (5)
  1. BLINCYTO [Suspect]
     Active Substance: BLINATUMOMAB
     Indication: MINIMAL RESIDUAL DISEASE
     Dosage: 28 MUG, QD
     Route: 065
     Dates: start: 201710, end: 20180429
  2. VINCRISTINE [Concomitant]
     Active Substance: VINCRISTINE
  3. METHOTREXATE. [Concomitant]
     Active Substance: METHOTREXATE
     Route: 048
  4. MERCAPTOPURINE. [Concomitant]
     Active Substance: MERCAPTOPURINE
  5. PREDNISONE. [Concomitant]
     Active Substance: PREDNISONE

REACTIONS (6)
  - Peroneal nerve palsy [Not Recovered/Not Resolved]
  - Pain in extremity [Not Recovered/Not Resolved]
  - Photosensitivity reaction [Recovered/Resolved]
  - Muscle spasms [Not Recovered/Not Resolved]
  - Vision blurred [Not Recovered/Not Resolved]
  - Arthralgia [Not Recovered/Not Resolved]

NARRATIVE: CASE EVENT DATE: 201805
